FAERS Safety Report 4608554-7 (Version None)
Quarter: 2005Q1

REPORT INFORMATION
  Report Type: 
  Country: None (occurrence: None)
  Receive Date: 20050315
  Receipt Date: 20050307
  Transmission Date: 20050727
  Serious: Yes (Hospitalization)
  Sender: FDA-Public Use
  Company Number: BW-BRISTOL-MYERS SQUIBB COMPANY-12893376

PATIENT
  Age: 28 Year
  Sex: Female

DRUGS (2)
  1. EFAVIRENZ [Suspect]
     Indication: HIV INFECTION
     Dates: start: 20041115
  2. COMBIVIR [Suspect]
     Indication: HIV INFECTION
     Dates: start: 20041115

REACTIONS (5)
  - ANAEMIA [None]
  - ASTHENIA [None]
  - DIZZINESS [None]
  - HEADACHE [None]
  - OEDEMA PERIPHERAL [None]
